FAERS Safety Report 5467694-3 (Version None)
Quarter: 2007Q3

REPORT INFORMATION
  Report Type: 
  Country: None (occurrence: None)
  Receive Date: 20070925
  Receipt Date: 20070917
  Transmission Date: 20080115
  Serious: Yes (Hospitalization)
  Sender: FDA-Public Use
  Company Number: US-ELI_LILLY_AND_COMPANY-US200709003361

PATIENT
  Age: 69 Year
  Sex: Male

DRUGS (3)
  1. HUMULIN 70/30 [Suspect]
     Dates: start: 20020101
  2. HUMULIN 70/30 [Suspect]
     Dates: start: 20020101
  3. HUMULIN 70/30 [Suspect]
     Dates: start: 20020101

REACTIONS (1)
  - CEREBROVASCULAR ACCIDENT [None]
